FAERS Safety Report 25608109 (Version 1)
Quarter: 2025Q3

REPORT INFORMATION
  Report Type: Spontaneous
  Country: US (occurrence: US)
  Receive Date: 20250725
  Receipt Date: 20250725
  Transmission Date: 20251020
  Serious: No
  Sender: INSUD PHARMA
  Company Number: US-INSUD PHARMA-2507US05804

PATIENT

DRUGS (1)
  1. SLYND [Suspect]
     Active Substance: DROSPIRENONE
     Indication: Product used for unknown indication
     Route: 048
     Dates: start: 202410

REACTIONS (8)
  - Premenstrual syndrome [Unknown]
  - Dysmenorrhoea [Unknown]
  - Acne [Unknown]
  - Premenstrual pain [Unknown]
  - Mood swings [Unknown]
  - Menstruation irregular [Not Recovered/Not Resolved]
  - Polymenorrhoea [Unknown]
  - Abnormal withdrawal bleeding [Unknown]

NARRATIVE: CASE EVENT DATE: 20250501
